FAERS Safety Report 19839621 (Version 1)
Quarter: 2021Q3

REPORT INFORMATION
  Report Type: Spontaneous
  Country: US (occurrence: US)
  Receive Date: 20210916
  Receipt Date: 20210916
  Transmission Date: 20211014
  Serious: No
  Sender: FDA-Public Use
  Company Number: None

PATIENT
  Age: 52 Year
  Sex: Male
  Weight: 93 kg

DRUGS (8)
  1. REGEN?COV [Suspect]
     Active Substance: CASIRIVIMAB\IMDEVIMAB
     Indication: COVID-19
     Dosage: ?          QUANTITY:4 INJECTION(S);OTHER FREQUENCY:2.5ML PER SITE;?
     Route: 058
     Dates: start: 20210825
  2. CALCIUM MAGNESIUM ZINC + VITAMIN D3 (COMBO) [Concomitant]
  3. RENEW LIFE INTESTINEW [Concomitant]
  4. JANSSEN COVID?19 VACCINE [Suspect]
     Active Substance: AD26.COV2.S
  5. LISINOPRIL. [Concomitant]
     Active Substance: LISINOPRIL
  6. D?LIMONENE [Concomitant]
  7. COLESEVELAM [Concomitant]
     Active Substance: COLESEVELAM
  8. ESOMEPRAZOLE. [Concomitant]
     Active Substance: ESOMEPRAZOLE MAGNESIUM

REACTIONS (9)
  - Cough [None]
  - Arthralgia [None]
  - Chills [None]
  - Pyrexia [None]
  - Dyspnoea [None]
  - Headache [None]
  - Pneumonia [None]
  - Myalgia [None]
  - Nausea [None]

NARRATIVE: CASE EVENT DATE: 20210825
